FAERS Safety Report 10891484 (Version 1)
Quarter: 2015Q1

REPORT INFORMATION
  Report Type: Report from Study
  Country: US (occurrence: US)
  Receive Date: 20150306
  Receipt Date: 20150306
  Transmission Date: 20150721
  Serious: Yes (Other)
  Sender: FDA-Public Use
  Company Number: US-BIOGENIDEC-2015BI007874

PATIENT
  Sex: Female

DRUGS (1)
  1. TYSABRI [Suspect]
     Active Substance: NATALIZUMAB
     Indication: EXPOSURE VIA FATHER
     Dates: start: 20120106

REACTIONS (2)
  - Maternal exposure during pregnancy [Recovered/Resolved]
  - Transverse presentation [Recovered/Resolved]

NARRATIVE: CASE EVENT DATE: 20141231
